FAERS Safety Report 12959912 (Version 1)
Quarter: 2016Q4

REPORT INFORMATION
  Report Type: Spontaneous
  Country: GB (occurrence: GB)
  Receive Date: 20161121
  Receipt Date: 20161121
  Transmission Date: 20170207
  Serious: Yes (Other)
  Sender: FDA-Public Use
  Company Number: GB-HORIZON-PRE-0335-2016

PATIENT
  Age: 51 Year
  Sex: Female
  Weight: 98.42 kg

DRUGS (1)
  1. PREDNISONE. [Suspect]
     Active Substance: PREDNISONE
     Indication: CROHN^S DISEASE
     Dosage: 5 MG PER DAY
     Route: 048
     Dates: start: 20161018

REACTIONS (7)
  - Disturbance in attention [Unknown]
  - Sebaceous gland disorder [Unknown]
  - Agitation [Unknown]
  - Hot flush [Unknown]
  - Neck pain [Unknown]
  - Dyspnoea [Unknown]
  - Palpitations [Unknown]

NARRATIVE: CASE EVENT DATE: 20161021
